FAERS Safety Report 4791352-1 (Version None)
Quarter: 2005Q4

REPORT INFORMATION
  Report Type: 
  Country: None (occurrence: None)
  Receive Date: 20051007
  Receipt Date: 19981111
  Transmission Date: 20060501
  Serious: Yes (Hospitalization)
  Sender: FDA-Public Use
  Company Number: SE-ROCHE-108868

PATIENT
  Age: 41 Year
  Sex: Female

DRUGS (5)
  1. TORADOL [Suspect]
     Route: 042
     Dates: start: 19971013, end: 19971013
  2. CARBOCAIN [Suspect]
     Indication: DRUG USE FOR UNKNOWN INDICATION
     Route: 042
     Dates: start: 19971013, end: 19971013
  3. ACETAMINOPHEN [Suspect]
     Route: 048
     Dates: start: 19971013, end: 19971013
  4. VOLTAREN [Suspect]
     Route: 042
     Dates: start: 19971013, end: 19971013
  5. KETOGAN NOVUM [Suspect]
     Route: 042
     Dates: start: 19971013, end: 19971013

REACTIONS (3)
  - ABORTION SPONTANEOUS [None]
  - DRUG EXPOSURE DURING PREGNANCY [None]
  - FOETAL GROWTH RETARDATION [None]
